FAERS Safety Report 6438167-6 (Version None)
Quarter: 2009Q4

REPORT INFORMATION
  Report Type: 
  Country: None (occurrence: None)
  Receive Date: 20091112
  Receipt Date: 20090506
  Transmission Date: 20100525
  Serious: Yes (Other)
  Sender: FDA-Public Use
  Company Number: US-PFIZER INC-2009210870

PATIENT
  Sex: Female
  Weight: 48 kg

DRUGS (3)
  1. PREMARIN [Suspect]
     Indication: HORMONE REPLACEMENT THERAPY
     Dosage: 1.25 MG, UNK
     Dates: start: 19680101, end: 19720101
  2. PREMARIN [Suspect]
     Indication: MENOPAUSAL SYMPTOMS
     Dosage: 1.25 MG, UNK
     Dates: start: 19810101, end: 19970101
  3. RANITIDINE HCL [Concomitant]
     Indication: ULCER
     Dosage: UNK
     Dates: start: 19930101

REACTIONS (1)
  - OVARIAN CANCER [None]
